FAERS Safety Report 15681427 (Version 1)
Quarter: 2018Q4

REPORT INFORMATION
  Report Type: Spontaneous
  Country: US (occurrence: US)
  Receive Date: 20181120
  Receipt Date: 20181120
  Transmission Date: 20190205
  Serious: No
  Sender: FDA-Public Use
  Company Number: None

PATIENT
  Age: 39 Year
  Sex: Male
  Weight: 110.25 kg

DRUGS (2)
  1. ROSUVASTATIN. [Suspect]
     Active Substance: ROSUVASTATIN
     Indication: BLOOD CHOLESTEROL INCREASED
     Dosage: ?          QUANTITY:1 DF DOSAGE FORM;?
     Route: 048
     Dates: start: 20181109, end: 20181117
  2. LORIZATAN/HCTZ [Concomitant]

REACTIONS (3)
  - Paraesthesia [None]
  - Hypoaesthesia [None]
  - Product quality issue [None]

NARRATIVE: CASE EVENT DATE: 20181110
